FAERS Safety Report 9434666 (Version 2)
Quarter: 2013Q3

REPORT INFORMATION
  Report Type: Spontaneous
  Country: IL (occurrence: IL)
  Receive Date: 20130801
  Receipt Date: 20130917
  Transmission Date: 20140515
  Serious: Yes (Other)
  Sender: FDA-Public Use
  Company Number: IL-ELI_LILLY_AND_COMPANY-IL201307008441

PATIENT
  Age: 75 Year
  Sex: Female

DRUGS (10)
  1. FORTEO [Suspect]
     Dosage: UNK
     Dates: start: 201304
  2. GLUCOMIN [Concomitant]
     Dosage: 850 MG, UNKNOWN
  3. EZETROL [Concomitant]
  4. LIPITOR [Concomitant]
  5. DIOVAN [Concomitant]
     Dosage: 160 DF, UNKNOWN
  6. PENEDIL [Concomitant]
     Dosage: 5 DF, UNKNOWN
  7. COUMADIN                           /00014802/ [Concomitant]
  8. TAMBOCOR [Concomitant]
     Dosage: 100 DF, UNKNOWN
  9. EUTHYROX [Concomitant]
  10. MACRODANTIN [Concomitant]

REACTIONS (2)
  - Atrial fibrillation [Recovered/Resolved]
  - Palpitations [Recovered/Resolved]
